FAERS Safety Report 7640189-4 (Version None)
Quarter: 2011Q3

REPORT INFORMATION
  Report Type: 
  Country: None (occurrence: None)
  Receive Date: 20110728
  Receipt Date: 20110713
  Transmission Date: 20111222
  Serious: Yes (Hospitalization, Other)
  Sender: FDA-Public Use
  Company Number: DE-BAYER-2011-042268

PATIENT
  Age: 66 Year
  Sex: Male

DRUGS (51)
  1. CLORAZEPATE DIPOTASSIUM [Interacting]
     Dosage: 425 MG, QD
     Route: 042
     Dates: start: 20050625, end: 20050625
  2. CLONIDINE HCL [Interacting]
     Dosage: UNKNOWN DAILY AMOUNT
     Route: 042
     Dates: start: 20050624, end: 20050709
  3. HALDOL [Interacting]
     Dosage: 17.5 MG, QD
     Route: 042
     Dates: start: 20050626, end: 20050626
  4. HALDOL [Interacting]
     Dosage: 17.5 MG, QD
     Route: 042
     Dates: start: 20050702, end: 20050702
  5. LUDIOMIL [Interacting]
     Dosage: UNKNOWN AMOUNT
     Route: 042
     Dates: start: 20050628, end: 20050629
  6. LUDIOMIL [Interacting]
     Dosage: UNKNOWN AMOUNT
     Route: 042
     Dates: start: 20050701, end: 20050704
  7. MADOPAR [Interacting]
     Indication: RESTLESS LEGS SYNDROME
     Dosage: 125 MG, QD
     Route: 048
     Dates: start: 20050707, end: 20050710
  8. TORSEMIDE [Interacting]
     Dosage: 70 MG, QD
     Route: 042
     Dates: start: 20050623, end: 20050623
  9. MORPHINE [Interacting]
     Dosage: 10 MG, BID
  10. MORPHINE [Interacting]
     Dosage: 19 EMPTY VIALS (EACH WITH 10 MG MORPHINE)
     Route: 048
     Dates: start: 20050622, end: 20050622
  11. KETANEST S [Interacting]
     Dosage: 200 MG, UNK
     Route: 042
     Dates: start: 20050705, end: 20050705
  12. KETANEST S [Interacting]
     Dosage: 100 MG, UNK
     Route: 042
     Dates: start: 20050708, end: 20050708
  13. PROPOFOL [Interacting]
     Dosage: 250 MG, QD
     Route: 042
     Dates: start: 20050623, end: 20050623
  14. MIDAZOLAM HCL [Interacting]
     Dosage: 2 MG, UNK
     Dates: start: 20050702, end: 20050702
  15. CLORAZEPATE DIPOTASSIUM [Interacting]
     Dosage: 200 MG, QD
     Route: 042
     Dates: start: 20050705, end: 20050705
  16. TORSEMIDE [Interacting]
     Dosage: 20 MG, QD
     Dates: start: 20050622, end: 20050622
  17. KETANEST S [Interacting]
     Indication: ANAESTHETIC PREMEDICATION
     Dosage: 50 MG, UNK
     Route: 042
     Dates: start: 20050702, end: 20050702
  18. CLORAZEPATE DIPOTASSIUM [Interacting]
  19. CLORAZEPATE DIPOTASSIUM [Interacting]
  20. HALDOL [Interacting]
     Dosage: 7.5 MG, QD
     Route: 042
     Dates: start: 20050703, end: 20050704
  21. METHYLPREDNISOLONE [Interacting]
     Dosage: 16 MG, QD
     Route: 042
     Dates: start: 20050624, end: 20050624
  22. PROMETHAZINE HCL [Interacting]
     Dosage: 50 MG, QD
     Route: 048
     Dates: start: 20050710, end: 20050710
  23. LORAZEPAM [Interacting]
     Dosage: 2 MG, QD
     Dates: start: 20050630, end: 20050701
  24. CLORAZEPATE DIPOTASSIUM [Interacting]
     Dosage: 50 MG, QD
     Route: 042
     Dates: start: 20050627, end: 20050627
  25. CLORAZEPATE DIPOTASSIUM [Interacting]
     Dosage: 50 MG, QD
     Route: 042
     Dates: start: 20050629, end: 20050701
  26. LUDIOMIL [Interacting]
     Dosage: 75 MG, QD
     Route: 048
     Dates: start: 20050705, end: 20050710
  27. SCOPOLAMINE [Interacting]
     Dosage: 20 MG, QD
     Route: 042
     Dates: start: 20050709, end: 20050709
  28. ASPIRIN [Interacting]
     Indication: PRODUCT USED FOR UNKNOWN INDICATION
     Dosage: 100 MG, QD
     Route: 048
     Dates: start: 20050706, end: 20050706
  29. CIPROFLOXACIN [Interacting]
     Indication: PRODUCT USED FOR UNKNOWN INDICATION
     Dosage: 400 MG, QD
     Route: 042
     Dates: start: 20050709, end: 20050711
  30. PROPOFOL [Interacting]
     Dosage: 320 MG, QD
     Route: 042
     Dates: start: 20050622, end: 20050622
  31. HALDOL [Interacting]
     Dosage: 7.5 MG, QD
     Route: 042
     Dates: start: 20050627, end: 20050630
  32. NEXIUM [Interacting]
     Dosage: 40 MG, QD
     Route: 042
     Dates: start: 20050622, end: 20050703
  33. PROMETHAZINE HCL [Interacting]
     Dosage: 50 MG, QD
     Route: 042
     Dates: start: 20050709, end: 20050709
  34. LORAZEPAM [Interacting]
     Dosage: 1 MG, QD
     Route: 042
     Dates: start: 20050709, end: 20050709
  35. PROPOFOL [Interacting]
     Dosage: 20 MG, QD
     Route: 042
     Dates: start: 20050625, end: 20050625
  36. CLORAZEPATE DIPOTASSIUM [Interacting]
     Dosage: 150 MG, QD
     Route: 042
     Dates: start: 20050624, end: 20050624
  37. LUDIOMIL [Interacting]
     Dosage: 75 MG, QD
     Route: 042
     Dates: start: 20050630, end: 20050630
  38. NOVALGIN [Interacting]
     Dosage: 1000 MG, QD
     Route: 042
     Dates: start: 20050709, end: 20050709
  39. ACETAMINOPHEN [Suspect]
     Dosage: 1000 MG, QD
     Route: 042
     Dates: start: 20050709, end: 20050709
  40. PROMETHAZINE HCL [Interacting]
     Indication: PRODUCT USED FOR UNKNOWN INDICATION
     Dosage: 50 MG, QD
     Route: 048
     Dates: start: 20050708, end: 20050708
  41. MIDAZOLAM HCL [Interacting]
     Dosage: UNKNOWN AMOUNT
     Dates: start: 20050623, end: 20050624
  42. CLORAZEPATE DIPOTASSIUM [Interacting]
     Dosage: 50 MG, QD
     Route: 042
     Dates: start: 20050708, end: 20050708
  43. TORSEMIDE [Interacting]
     Dosage: 30 MG, QD
     Route: 042
     Dates: start: 20050624, end: 20050703
  44. TORSEMIDE [Interacting]
     Dosage: 10 MG, QD
     Route: 048
     Dates: start: 20050704, end: 20050711
  45. NEXIUM [Interacting]
     Dosage: 20 MG, UNK
     Route: 048
     Dates: start: 20050704, end: 20050711
  46. METOCLOPRAMIDE [Interacting]
     Dosage: 16.9 MG, QD
     Dates: start: 20050709, end: 20050709
  47. LORAZEPAM [Interacting]
     Dosage: 2.5 MG, QD
     Route: 042
     Dates: start: 20050705, end: 20050705
  48. PROPOFOL [Interacting]
     Dosage: UNKNOWN AMOUNT, SYRINGE PUMP
     Route: 042
     Dates: start: 20050624, end: 20050624
  49. HALDOL [Interacting]
     Dosage: 5 MG, QD
     Route: 042
     Dates: start: 20050625, end: 20050625
  50. HALDOL [Interacting]
     Dosage: 12.5 MG, QD
     Route: 042
     Dates: start: 20050701, end: 20050701
  51. LUDIOMIL [Interacting]
     Dosage: 25 MG, QD
     Route: 048
     Dates: start: 20050711, end: 20050711

REACTIONS (7)
  - DISORIENTATION [None]
  - TRACHEOBRONCHITIS [None]
  - PSYCHOMOTOR HYPERACTIVITY [None]
  - CHOLANGITIS [None]
  - ACUTE ABDOMEN [None]
  - FALL [None]
  - INFECTIOUS PERITONITIS [None]
